FAERS Safety Report 23642167 (Version 2)
Quarter: 2025Q1

REPORT INFORMATION
  Report Type: Report from Study
  Country: CA (occurrence: CA)
  Receive Date: 20240318
  Receipt Date: 20250321
  Transmission Date: 20250409
  Serious: Yes (Other)
  Sender: TAKEDA
  Company Number: CA-TAKEDA-2024TUS024125

PATIENT
  Sex: Male

DRUGS (5)
  1. VEDOLIZUMAB [Suspect]
     Active Substance: VEDOLIZUMAB
     Indication: Crohn^s disease
  2. PREDNISONE [Concomitant]
     Active Substance: PREDNISONE
     Dosage: UNK UNK, QD
  3. AMLODIPINE [Concomitant]
     Active Substance: AMLODIPINE BESYLATE
  4. BISOPROLOL [Concomitant]
     Active Substance: BISOPROLOL
  5. NYSTATIN [Concomitant]
     Active Substance: NYSTATIN
     Indication: Candida infection

REACTIONS (2)
  - Oral candidiasis [Recovering/Resolving]
  - Gingival discomfort [Unknown]
